FAERS Safety Report 21433862 (Version 1)
Quarter: 2022Q4

REPORT INFORMATION
  Report Type: Spontaneous
  Country: US (occurrence: US)
  Receive Date: 20221010
  Receipt Date: 20221010
  Transmission Date: 20230112
  Serious: Yes (Other)
  Sender: FDA-Public Use
  Company Number: US-NOVOPROD-964671

PATIENT
  Age: 87 Year
  Sex: Female
  Weight: 48.987 kg

DRUGS (1)
  1. NOVOLOG [Suspect]
     Active Substance: INSULIN ASPART
     Indication: Product used for unknown indication
     Dosage: UNK
     Route: 058
     Dates: start: 2007, end: 2021

REACTIONS (3)
  - Hepatic cancer [Recovered/Resolved]
  - Osteoporosis [Unknown]
  - Rash [Recovered/Resolved]

NARRATIVE: CASE EVENT DATE: 20210101
